FAERS Safety Report 6021530-5 (Version None)
Quarter: 2008Q4

REPORT INFORMATION
  Report Type: 
  Country: None (occurrence: None)
  Receive Date: 20081229
  Receipt Date: 20081226
  Transmission Date: 20090506
  Serious: Yes (Hospitalization)
  Sender: FDA-Public Use
  Company Number: FR-BRISTOL-MYERS SQUIBB COMPANY-14455695

PATIENT
  Age: 46 Year
  Sex: Male

DRUGS (6)
  1. AMPHOTERICIN B [Suspect]
     Route: 042
  2. ATAZANAVIR [Suspect]
     Indication: ANTIRETROVIRAL THERAPY
     Dates: start: 20050617
  3. EMTRICITABINE [Suspect]
     Indication: ANTIRETROVIRAL THERAPY
     Dates: start: 20050617
  4. TENOFOVIR [Suspect]
     Indication: ANTIRETROVIRAL THERAPY
     Dates: start: 20050617
  5. FLUCONAZOLE [Suspect]
  6. FLUCYTOSINE [Suspect]

REACTIONS (4)
  - CEREBRAL VENOUS THROMBOSIS [None]
  - IMMUNE RECONSTITUTION SYNDROME [None]
  - PARADOXICAL DRUG REACTION [None]
  - THROMBOPHLEBITIS [None]
